FAERS Safety Report 19943442 (Version 2)
Quarter: 2023Q4

REPORT INFORMATION
  Report Type: Spontaneous
  Country: CN (occurrence: CN)
  Receive Date: 20211011
  Receipt Date: 20231006
  Transmission Date: 20240109
  Serious: Yes (Death, Other)
  Sender: FDA-Public Use
  Company Number: CN-BAYER-2021A227528

PATIENT
  Age: 6 Decade
  Sex: Male
  Weight: 50 kg

DRUGS (2)
  1. ULTRAVIST [Suspect]
     Active Substance: IOPROMIDE
     Indication: Abdomen scan
     Dosage: 100 ML, ONCE
     Route: 042
     Dates: start: 20200704, end: 20200704
  2. ULTRAVIST [Suspect]
     Active Substance: IOPROMIDE
     Indication: Colorectal cancer stage IV

REACTIONS (2)
  - Renal failure [Fatal]
  - Acute kidney injury [None]

NARRATIVE: CASE EVENT DATE: 20200701
